FAERS Safety Report 12796714 (Version 1)
Quarter: 2016Q3

REPORT INFORMATION
  Report Type: Spontaneous
  Country: US (occurrence: US)
  Receive Date: 20160929
  Receipt Date: 20160929
  Transmission Date: 20161109
  Serious: No
  Sender: FDA-Public Use
  Company Number: US-PFIZER INC-3007707

PATIENT
  Age: 69 Year
  Sex: Male
  Weight: 100 kg

DRUGS (2)
  1. ROPIVACAINE [Concomitant]
     Active Substance: ROPIVACAINE
     Indication: NERVE BLOCK
     Dosage: 8 ML/ HR; CONTINUOUS
     Route: 042
     Dates: start: 20150909, end: 20150911
  2. BUPIVACAINE HYDROCHLORIDE/EPINEPHRINE [Suspect]
     Active Substance: BUPIVACAINE HYDROCHLORIDE\EPINEPHRINE
     Indication: SPINAL ANAESTHESIA
     Dosage: 12.5 MG,FREQ: AS NECESSARY
     Route: 024
     Dates: start: 20150909, end: 20150909

REACTIONS (1)
  - Drug ineffective [Recovered/Resolved]

NARRATIVE: CASE EVENT DATE: 20150909
